FAERS Safety Report 5132166-2 (Version None)
Quarter: 2006Q4

REPORT INFORMATION
  Report Type: 
  Country: None (occurrence: None)
  Receive Date: 20061017
  Receipt Date: 20061006
  Transmission Date: 20070319
  Serious: Yes (Hospitalization, Other)
  Sender: FDA-Public Use
  Company Number: 236601K06USA

PATIENT
  Age: 40 Year
  Sex: Female

DRUGS (2)
  1. REBIF [Suspect]
     Indication: MULTIPLE SCLEROSIS
     Dosage: 44 MCG, 3 IN 1 WEEKS, SUBCUTANEOUS
     Route: 058
     Dates: start: 20050505
  2. TOPAMAX [Suspect]
     Dosage: NOT REPORTED, NOT REPORTED, NOT REPORTED

REACTIONS (3)
  - DEPRESSION [None]
  - DIZZINESS [None]
  - INTENTIONAL SELF-INJURY [None]
